FAERS Safety Report 17989331 (Version 1)
Quarter: 2020Q3

REPORT INFORMATION
  Report Type: Spontaneous
  Country: CA (occurrence: CA)
  Receive Date: 20200707
  Receipt Date: 20200707
  Transmission Date: 20201103
  Serious: Yes (Other)
  Sender: FDA-Public Use
  Company Number: CA-PFIZER INC-2017235660

PATIENT
  Age: 67 Year
  Sex: Female

DRUGS (17)
  1. METHOTREXATE SODIUM. [Suspect]
     Active Substance: METHOTREXATE SODIUM
     Indication: RHEUMATOID ARTHRITIS
     Dosage: UNK
     Route: 048
     Dates: start: 201404, end: 201506
  2. PANTOPRAZOLE SODIUM. [Concomitant]
     Active Substance: PANTOPRAZOLE SODIUM
     Dosage: 40 MG, DAILY (1 TAB?BEFORE BREAKFAST)
     Route: 048
  3. FOLIC ACID. [Concomitant]
     Active Substance: FOLIC ACID
     Dosage: 5 MG, 2X/WEEK (THE DAY BEFORE AND THE DAY AFTER METHOTREXATE)
     Route: 048
  4. XELJANZ [Concomitant]
     Active Substance: TOFACITINIB CITRATE
     Indication: RHEUMATOID ARTHRITIS
     Dosage: UNK
     Dates: start: 20170618, end: 20170914
  5. METHOTREXATE SODIUM. [Suspect]
     Active Substance: METHOTREXATE SODIUM
     Indication: RHEUMATOID ARTHRITIS
     Dosage: 25 MG, WEEKLY
     Dates: start: 201506
  6. PMS?FLUOXETINE [Concomitant]
     Active Substance: FLUOXETINE HYDROCHLORIDE
     Dosage: 30 MG, DAILY(PMS?FLUOXETINE 20 MG 1 TAB DAILY AT BREAKFAST WITH 1 TAB OF 10 MG FLUOXETINE)
     Route: 048
  7. XARELTO [Concomitant]
     Active Substance: RIVAROXABAN
     Dosage: 20 MG, 1X/DAY (AT DINNER)
     Route: 048
  8. BROMAZEPAM TEVA [Concomitant]
     Dosage: 3 MG, 2X/DAY(3 MG TAB TWICE DAILY MORNING AND EVENING IF NEEDED)
     Route: 048
  9. METHOTREXATE SODIUM. [Suspect]
     Active Substance: METHOTREXATE SODIUM
     Dosage: 25 MG, WEEKLY
     Route: 048
     Dates: start: 201506
  10. BISOPROLOL TEVA [Concomitant]
     Active Substance: BISOPROLOL
     Dosage: 5 MG, DAILY (1 TAB ? MORNING)
     Route: 048
  11. FLUOXETINE TEVA [Concomitant]
     Active Substance: FLUOXETINE HYDROCHLORIDE
     Dosage: 30 MG, DAILY (FLUOXETINE 10 MG 1 TAB DAILY AT BREAKFAST WITH 1 TAB OF 20 MG FLUOXETINE)
     Route: 048
  12. PLAQUENIL [Concomitant]
     Active Substance: HYDROXYCHLOROQUINE SULFATE
     Dosage: 400 UNK, UNK
     Dates: start: 201309, end: 201410
  13. SIMPONI [Concomitant]
     Active Substance: GOLIMUMAB
     Dosage: 50 MG, MONTHLY
     Dates: start: 201509, end: 20170517
  14. ENBREL [Concomitant]
     Active Substance: ETANERCEPT
     Indication: RHEUMATOID ARTHRITIS
     Dosage: UNK
     Dates: start: 20141024, end: 201509
  15. ATASOL /00020001/ [Concomitant]
     Active Substance: ACETAMINOPHEN
     Dosage: UNK UNK, AS NEEDED
     Route: 048
  16. RISEDRONATE APOTEX [Concomitant]
     Dosage: 35 MG, ONCE WEEKLY
     Route: 048
  17. VITAMIN D3 [Concomitant]
     Active Substance: CHOLECALCIFEROL
     Dosage: 10000 IU, 1 TAB ONCE WEEKLY AT BREAKFAST
     Route: 048

REACTIONS (6)
  - Haematochezia [Unknown]
  - Drug intolerance [Unknown]
  - Abdominal discomfort [Unknown]
  - Drug ineffective [Unknown]
  - Pain [Unknown]
  - Hepatic enzyme increased [Unknown]
